FAERS Safety Report 20605303 (Version 5)
Quarter: 2022Q2

REPORT INFORMATION
  Report Type: Report from Study
  Country: US (occurrence: US)
  Receive Date: 20220317
  Receipt Date: 20220622
  Transmission Date: 20220721
  Serious: Yes (Other)
  Sender: FDA-Public Use
  Company Number: US-ABBVIE-21K-163-3993898-00

PATIENT
  Sex: Female

DRUGS (5)
  1. HUMIRA [Suspect]
     Active Substance: ADALIMUMAB
     Indication: Crohn^s disease
     Dosage: CITRATE FREE
     Route: 058
  2. HUMIRA [Suspect]
     Active Substance: ADALIMUMAB
     Dosage: CITRATE FREE
     Route: 058
  3. PFIZER-BIONTECH COVID-19 VACCINE [Concomitant]
     Active Substance: TOZINAMERAN
     Indication: COVID-19 immunisation
     Dosage: 1ST DOSE
     Route: 030
     Dates: start: 20210309, end: 20210309
  4. PFIZER-BIONTECH COVID-19 VACCINE [Concomitant]
     Active Substance: TOZINAMERAN
     Dosage: 2ND DOSE
     Route: 030
     Dates: start: 20210406, end: 20210406
  5. PFIZER-BIONTECH COVID-19 VACCINE [Concomitant]
     Active Substance: TOZINAMERAN
     Dosage: 3RD DOSE
     Route: 030
     Dates: start: 20210831, end: 20210831

REACTIONS (17)
  - Osteoarthritis [Unknown]
  - Rheumatoid arthritis [Unknown]
  - Post procedural swelling [Unknown]
  - Fatigue [Unknown]
  - Gait disturbance [Unknown]
  - Joint injury [Unknown]
  - Insomnia [Unknown]
  - Diplopia [Unknown]
  - Peripheral swelling [Unknown]
  - Urticaria [Unknown]
  - Pain [Unknown]
  - Therapeutic product effect decreased [Unknown]
  - Peripheral swelling [Unknown]
  - Pyrexia [Recovered/Resolved]
  - Tooth infection [Unknown]
  - Tooth fracture [Unknown]
  - Malaise [Unknown]

NARRATIVE: CASE EVENT DATE: 20210101
